FAERS Safety Report 17649563 (Version 1)
Quarter: 2020Q2

REPORT INFORMATION
  Report Type: Spontaneous
  Country: US (occurrence: US)
  Receive Date: 20200409
  Receipt Date: 20200409
  Transmission Date: 20200713
  Serious: Yes (Other)
  Sender: FDA-Public Use
  Company Number: US-AMERICAN REGENT INC-2020000834

PATIENT
  Age: 35 Year
  Sex: Female

DRUGS (6)
  1. EPINEPHRINE INJECTION, USP (0517-1071-01) [Suspect]
     Active Substance: EPINEPHRINE
     Indication: ANAPHYLACTIC REACTION
     Dosage: UNK
     Route: 030
  2. FAMOTIDINE. [Concomitant]
     Active Substance: FAMOTIDINE
     Indication: ANAPHYLACTIC REACTION
     Dosage: UNK
     Route: 042
  3. METHYLPREDNISOLONE. [Concomitant]
     Active Substance: METHYLPREDNISOLONE
     Indication: ANAPHYLACTIC REACTION
     Dosage: UNK
     Route: 042
  4. DIPHENHYDRAMINE. [Concomitant]
     Active Substance: DIPHENHYDRAMINE
     Indication: ANAPHYLACTIC REACTION
     Dosage: UNK
     Route: 042
  5. NORMAL SALINE [Concomitant]
     Active Substance: SODIUM CHLORIDE
     Indication: ANAPHYLACTIC REACTION
     Dosage: 1500 MILLILITER
  6. AMOXICILLIN/CLAVULANIC ACID [Concomitant]
     Active Substance: AMOXICILLIN\CLAVULANIC ACID
     Indication: PRODUCT USED FOR UNKNOWN INDICATION
     Dosage: UNK
     Route: 065

REACTIONS (1)
  - Acute coronary syndrome [Unknown]
